FAERS Safety Report 14601423 (Version 2)
Quarter: 2018Q1

REPORT INFORMATION
  Report Type: Spontaneous
  Country: US (occurrence: US)
  Receive Date: 20180305
  Receipt Date: 20180307
  Transmission Date: 20180509
  Serious: Yes (Hospitalization, Other)
  Sender: FDA-Public Use
  Company Number: US-CONCORDIA PHARMACEUTICALS INC.-GSH201803-000739

PATIENT
  Age: 69 Year
  Sex: Male

DRUGS (2)
  1. CLONIDINE. [Suspect]
     Active Substance: CLONIDINE
     Indication: HYPERTENSION
     Dosage: CLONIDINE WAS THUS GRADUALLY TAPERED
  2. CLONIDINE. [Suspect]
     Active Substance: CLONIDINE
     Dosage: DISCONTINUED OVER FIVE DAYS

REACTIONS (2)
  - Syncope [Unknown]
  - Bradycardia [Recovered/Resolved]
